FAERS Safety Report 15352156 (Version 1)
Quarter: 2018Q3

REPORT INFORMATION
  Report Type: Spontaneous
  Country: JP (occurrence: JP)
  Receive Date: 20180905
  Receipt Date: 20180905
  Transmission Date: 20181010
  Serious: Yes (Other)
  Sender: FDA-Public Use
  Company Number: JP-BAUSCH-BL-2018-023283

PATIENT
  Age: 16 Year
  Sex: Female

DRUGS (3)
  1. PREDNISOLONE. [Suspect]
     Active Substance: PREDNISOLONE
     Indication: GRAFT VERSUS HOST DISEASE
  2. CYCLOSPORINE. [Suspect]
     Active Substance: CYCLOSPORINE
     Indication: CONGENITAL APLASTIC ANAEMIA
     Route: 065
  3. PREDNISOLONE. [Suspect]
     Active Substance: PREDNISOLONE
     Indication: CONGENITAL APLASTIC ANAEMIA
     Route: 065

REACTIONS (3)
  - Posterior reversible encephalopathy syndrome [Unknown]
  - Drug ineffective [Unknown]
  - Limbic encephalitis [Unknown]
